FAERS Safety Report 23976789 (Version 1)
Quarter: 2024Q2

REPORT INFORMATION
  Report Type: Spontaneous
  Country: US (occurrence: US)
  Receive Date: 20240614
  Receipt Date: 20240614
  Transmission Date: 20240716
  Serious: No
  Sender: FDA-Public Use
  Company Number: US-ABBVIE-5799340

PATIENT
  Sex: Female

DRUGS (1)
  1. ACUVAIL [Suspect]
     Active Substance: KETOROLAC TROMETHAMINE
     Indication: Product used for unknown indication
     Dosage: FORM STRENGTH; 4.5MG/ML SOLUTION
     Route: 047
     Dates: start: 20240608

REACTIONS (4)
  - Vitreous floaters [Recovered/Resolved]
  - Vitreous floaters [Unknown]
  - Photopsia [Unknown]
  - Eye inflammation [Unknown]

NARRATIVE: CASE EVENT DATE: 20240101
